FAERS Safety Report 26199170 (Version 1)
Quarter: 2025Q4

REPORT INFORMATION
  Report Type: Spontaneous
  Country: US (occurrence: US)
  Receive Date: 20251225
  Receipt Date: 20251225
  Transmission Date: 20260117
  Serious: No
  Sender: ABBVIE
  Company Number: US-ABBVIE-6606242

PATIENT
  Age: 26 Year
  Sex: Female
  Weight: 74 kg

DRUGS (2)
  1. LILETTA [Suspect]
     Active Substance: LEVONORGESTREL
     Indication: Contraception
     Dosage: TIME INTERVAL: AS NECESSARY: FORM STRENGTH: 52 MILLIGRAM
     Route: 015
     Dates: start: 20250204, end: 202511
  2. FAMOTIDINE [Concomitant]
     Active Substance: FAMOTIDINE
     Indication: Fibromyalgia
     Dosage: 20 MILLIGRAM

REACTIONS (4)
  - Anxiety [Unknown]
  - Device expulsion [Unknown]
  - Nausea [Unknown]
  - Emotional distress [Unknown]

NARRATIVE: CASE EVENT DATE: 20251101
